FAERS Safety Report 7669226-8 (Version None)
Quarter: 2011Q3

REPORT INFORMATION
  Report Type: 
  Country: None (occurrence: None)
  Receive Date: 20110808
  Receipt Date: 20110725
  Transmission Date: 20111222
  Serious: Yes (Other)
  Sender: FDA-Public Use
  Company Number: PHHY2011DE34534

PATIENT
  Sex: Female

DRUGS (3)
  1. CYCLOSPORINE [Suspect]
     Indication: PSORIASIS
     Dosage: 100 MG PER DAY
     Route: 048
     Dates: start: 20101001, end: 20101201
  2. CIGNOLIN [Concomitant]
     Indication: PSORIASIS
     Dosage: UNK UKN, UNK
     Dates: end: 20101201
  3. CYCLOSPORINE [Suspect]
     Indication: PSORIASIS
     Dosage: 300 MG PER DAY
     Route: 048
     Dates: start: 20091201, end: 20101001

REACTIONS (5)
  - FACE OEDEMA [None]
  - EYELID OEDEMA [None]
  - ABDOMINAL PAIN UPPER [None]
  - GASTRIC DISORDER [None]
  - ASTHENOPIA [None]
